FAERS Safety Report 8815444 (Version 1)
Quarter: 2012Q4

REPORT INFORMATION
  Report Type: 
  Country: US (occurrence: US)
  Receive Date: 20120928
  Receipt Date: 20120928
  Transmission Date: 20130627
  Serious: Yes (Other)
  Sender: FDA-Public Use
  Company Number: US-JNJFOC-20120909112

PATIENT
  Age: 57 Year
  Sex: Female
  Weight: 146.97 kg

DRUGS (5)
  1. SUDAFED 24 HOUR [Suspect]
     Indication: MULTIPLE ALLERGIES
     Dosage: patirnt was not sure if she took the product on 13-SEP-2012 or 14-SEP-2012
     Route: 048
  2. SUDAFED 24 HOUR TABLET [Suspect]
     Indication: SINUS OPERATION
     Dosage: patirnt was not sure if she took the product on 13-SEP-2012 or 14-SEP-2012
     Route: 048
  3. SUDAFED 24 HOUR TABLET [Suspect]
     Indication: NASAL CONGESTION
     Dosage: patirnt was not sure if she took the product on 13-SEP-2012 or 14-SEP-2012
     Route: 048
  4. INSULIN [Concomitant]
     Indication: DIABETES MELLITUS
     Route: 065
  5. SYNTHROID [Concomitant]
     Indication: THYROID DISORDER
     Route: 065

REACTIONS (2)
  - Fibromyalgia [Recovered/Resolved]
  - Migraine [Recovered/Resolved]
